FAERS Safety Report 5595894-0 (Version None)
Quarter: 2008Q1

REPORT INFORMATION
  Report Type: 
  Country: None (occurrence: None)
  Receive Date: 20080118
  Receipt Date: 20080116
  Transmission Date: 20080703
  Serious: Yes (Death)
  Sender: FDA-Public Use
  Company Number: PHEH2008US00634

PATIENT
  Age: 80 Year
  Sex: Female

DRUGS (9)
  1. FEMARA [Suspect]
     Indication: BREAST CANCER
     Dosage: 2.5 MG, QD
     Route: 048
     Dates: start: 20030318, end: 20071217
  2. MIACALCIN [Concomitant]
  3. DURAGESIC-100 [Concomitant]
     Dosage: Q48H
     Route: 062
  4. MSIR [Concomitant]
     Dosage: PRN
  5. DITROPAN XL [Concomitant]
     Dosage: 10 MG, QD
     Route: 048
  6. VITAMIN B-12 [Concomitant]
     Dosage: 1 DF, QMO
  7. NORVASC [Concomitant]
     Dosage: 2.5 MG, QD
     Route: 048
  8. PRILOSEC [Concomitant]
     Dosage: 20 MG, QD
     Route: 048
  9. SYNTHROID [Concomitant]
     Dosage: 75 UG, QD
     Route: 048

REACTIONS (2)
  - ASTHENIA [None]
  - DEATH [None]
